FAERS Safety Report 6549111-5 (Version None)
Quarter: 2010Q1

REPORT INFORMATION
  Report Type: 
  Country: None (occurrence: None)
  Receive Date: 20100125
  Receipt Date: 20100118
  Transmission Date: 20100710
  Serious: Yes (Hospitalization, Other)
  Sender: FDA-Public Use
  Company Number: BR-ROCHE-680744

PATIENT
  Sex: Female
  Weight: 70 kg

DRUGS (7)
  1. TOCILIZUMAB [Suspect]
     Indication: RHEUMATOID ARTHRITIS
     Dosage: FORM REPORTED AS INFUSION.
     Route: 065
     Dates: start: 20090728, end: 20091101
  2. CODEINE SUL TAB [Concomitant]
  3. LORAX [Concomitant]
  4. MOTRIN [Concomitant]
     Indication: PAIN
  5. ARAVA [Concomitant]
  6. METICORTEN [Concomitant]
  7. METHOTREXATE [Concomitant]

REACTIONS (4)
  - BLOOD CREATININE INCREASED [None]
  - BLOOD PRESSURE INCREASED [None]
  - DRUG INEFFECTIVE [None]
  - RENAL DISORDER [None]
